FAERS Safety Report 13108778 (Version 1)
Quarter: 2017Q1

REPORT INFORMATION
  Report Type: Spontaneous
  Country: CN (occurrence: CN)
  Receive Date: 20170112
  Receipt Date: 20170112
  Transmission Date: 20170428
  Serious: Yes (Hospitalization)
  Sender: FDA-Public Use
  Company Number: CN-PFIZER INC-2017009703

PATIENT
  Age: 59 Year
  Sex: Male

DRUGS (5)
  1. VFEND [Suspect]
     Active Substance: VORICONAZOLE
     Indication: FUNGAL INFECTION
     Dosage: 0.2 G, 2X/DAY
     Route: 041
     Dates: start: 20160915, end: 20160918
  2. CASPOFUNGIN [Concomitant]
     Active Substance: CASPOFUNGIN
     Indication: ANTI-INFECTIVE THERAPY
     Dosage: 50 MG, 1X/DAY
  3. CIPROFLOXACIN. [Concomitant]
     Active Substance: CIPROFLOXACIN
     Indication: ANTI-INFECTIVE THERAPY
     Dosage: 0.4 G, 2X/DAY
     Route: 041
  4. VFEND [Suspect]
     Active Substance: VORICONAZOLE
     Dosage: 0.2 G, 1X/DAY
     Route: 041
  5. SULPERAZONE [Concomitant]
     Active Substance: CEFOPERAZONE SODIUM\SULBACTAM SODIUM
     Indication: ANTI-INFECTIVE THERAPY
     Dosage: 1 G, 3X/DAY
     Route: 041

REACTIONS (1)
  - Mental disorder [Recovering/Resolving]

NARRATIVE: CASE EVENT DATE: 20160916
